FAERS Safety Report 6164712-4 (Version None)
Quarter: 2009Q2

REPORT INFORMATION
  Report Type: 
  Country: None (occurrence: None)
  Receive Date: 20090421
  Receipt Date: 20090413
  Transmission Date: 20091009
  Serious: Yes (Other)
  Sender: FDA-Public Use
  Company Number: 2009-JP002191

PATIENT
  Age: 57 Year
  Sex: Female
  Weight: 50 kg

DRUGS (13)
  1. PROGRAF [Suspect]
     Indication: STEM CELL TRANSPLANT
     Dosage: CONTINUOUS, IV DRIP
     Route: 041
  2. PREDNISOLONE [Suspect]
     Indication: STEM CELL TRANSPLANT
     Dosage: 50 MG, /D, IV DRIP; 40 MG, /D, IV DRIP, 30 MG, /D, IV DRIP, 15 MG, /D, IV DRIP
     Route: 041
  3. METHOTREXATE [Suspect]
     Indication: STEM CELL TRANSPLANT
  4. MYCOPHENOLATE MOFETIL [Suspect]
     Indication: STEM CELL TRANSPLANT
     Dosage: 1000 MG, BID,ORAL
     Route: 048
  5. INFLIXIMAB(INFLIXIMAB) FORMULATION UNKNOWN [Suspect]
     Indication: STEM CELL TRANSPLANT
     Dosage: 300 MG, /D
  6. FOSCARNET (FOSCARNET) INJECTION [Concomitant]
  7. RABEPRAZOLE (RABEPRAZOLE) TABLET [Concomitant]
  8. FLUNITRAZEPAM (FLUNITRAZEPAM) TABLET [Concomitant]
  9. SULFAMETHOXAZOLE AND TRIMETHOPRIM [Suspect]
  10. LEVOFLOXACIN [Concomitant]
  11. DIMETHICONE (SIMETICONE) TABLET [Concomitant]
  12. AMLODIPIN (AMLODIPINE) TABLET [Concomitant]
  13. FUNGUARD (MICAFUNGIN) INJECTION [Concomitant]

REACTIONS (5)
  - BACTERIAL INFECTION [None]
  - CYSTITIS HAEMORRHAGIC [None]
  - CYTOMEGALOVIRUS INFECTION [None]
  - NO THERAPEUTIC RESPONSE [None]
  - THROMBOTIC MICROANGIOPATHY [None]
